FAERS Safety Report 4547519-0 (Version None)
Quarter: 2004Q4

REPORT INFORMATION
  Report Type: 
  Country: None (occurrence: None)
  Receive Date: 20041223
  Receipt Date: 20041118
  Transmission Date: 20050328
  Serious: No
  Sender: FDA-Public Use
  Company Number: US-JNJFOC-20040100665

PATIENT
  Age: 22 Year
  Sex: Female
  Weight: 57.6068 kg

DRUGS (2)
  1. ORTHO EVRA [Suspect]
     Indication: CONTRACEPTION
     Dosage: 1 DOSE(S), 3 IN 4 WEEK, TRANSDERMAL
     Route: 062
  2. ANITIBIOTICS (ANTIBIOTICS) [Concomitant]

REACTIONS (4)
  - PHARYNGITIS STREPTOCOCCAL [None]
  - TOOTH DISORDER [None]
  - VAGINAL DISCHARGE [None]
  - VAGINAL DISORDER [None]
